FAERS Safety Report 8515653 (Version 2)
Quarter: 2012Q4

REPORT INFORMATION
  Report Type: 
  Country: US (occurrence: US)
  Receive Date: 20120417
  Receipt Date: 20121109
  Transmission Date: 20130627
  Serious: Yes (Hospitalization, Other)
  Sender: FDA-Public Use
  Company Number: US-BAYER-2012-034660

PATIENT
  Age: 27 Year
  Sex: Female
  Weight: 72.56 kg

DRUGS (5)
  1. YASMIN [Suspect]
     Indication: MENSTRUAL IRREGULARITY
     Dosage: UNK
     Dates: start: 2007, end: 2012
  2. OCELLA [Suspect]
     Indication: MENSTRUAL CYCLE MANAGEMENT
     Dosage: UNK
     Dates: start: 2007, end: 2012
  3. PEPCID [Concomitant]
  4. BENTYL [Concomitant]
  5. BELLADONNA AND DERIVATIVES [Concomitant]

REACTIONS (7)
  - Cholecystitis chronic [None]
  - Cholecystitis acute [None]
  - Emotional distress [None]
  - Psychological trauma [None]
  - Injury [None]
  - Anxiety [None]
  - Pain [None]
